FAERS Safety Report 18448386 (Version 2)
Quarter: 2021Q2

REPORT INFORMATION
  Report Type: Spontaneous
  Country: IT (occurrence: IT)
  Receive Date: 20201031
  Receipt Date: 20210629
  Transmission Date: 20210717
  Serious: Yes (Hospitalization, Other)
  Sender: FDA-Public Use
  Company Number: IT-ACCORD-206580

PATIENT
  Age: 67 Year
  Sex: Male

DRUGS (12)
  1. COLECALCIFEROL [Concomitant]
     Active Substance: CHOLECALCIFEROL
  2. EDOXABAN [Concomitant]
     Active Substance: EDOXABAN TOSYLATE
     Indication: ANTICOAGULANT THERAPY
  3. TEMOZOLOMIDE. [Suspect]
     Active Substance: TEMOZOLOMIDE
     Indication: PITUITARY TUMOUR BENIGN
     Dates: end: 20200131
  4. ENOXAPARIN [Concomitant]
     Active Substance: ENOXAPARIN
     Indication: DEEP VEIN THROMBOSIS
     Dosage: 8,000 UI S.C. X2/DAILY
  5. CABERGOLINE. [Interacting]
     Active Substance: CABERGOLINE
     Indication: PITUITARY-DEPENDENT CUSHING^S SYNDROME
     Dosage: 0.5 MG, QD (1/DAY)
     Route: 065
  6. METYRAPONE/METYRAPONE TARTRATE [Interacting]
     Active Substance: METYRAPONE
     Indication: CUSHING^S SYNDROME
     Dosage: DAILY AT BEDTIME IN 2019, RESTARTED (250 MG/DAILY) AND STOPPED
     Dates: start: 202001
  7. SITAGLIPTIN/SITAGLIPTIN PHOSPHATE [Concomitant]
     Active Substance: SITAGLIPTIN PHOSPHATE
     Indication: DIABETES MELLITUS
     Dosage: 50 MILLIGRAM, QD
     Route: 065
     Dates: start: 201806
  8. HYDROXYCHLOROQUINE [Interacting]
     Active Substance: HYDROXYCHLOROQUINE
     Indication: COVID-19 PNEUMONIA
     Route: 065
  9. LEVOTHYROXINE. [Concomitant]
     Active Substance: LEVOTHYROXINE
     Indication: HYPOPITUITARISM
     Dosage: 100 UG, QD (1/DAY)
     Route: 065
  10. CEFTRIAXONE. [Interacting]
     Active Substance: CEFTRIAXONE
     Indication: COVID-19 PNEUMONIA
     Route: 065
  11. AZITHROMYCIN ANHYDROUS. [Interacting]
     Active Substance: AZITHROMYCIN ANHYDROUS
     Indication: COVID-19 PNEUMONIA
     Route: 065
     Dates: start: 2020
  12. LEVETIRACETAM. [Concomitant]
     Active Substance: LEVETIRACETAM

REACTIONS (7)
  - Hyperkalaemia [Unknown]
  - Off label use [Unknown]
  - Leukopenia [Unknown]
  - Adrenal insufficiency [Unknown]
  - Lymphopenia [Unknown]
  - Drug interaction [Unknown]
  - Product use issue [Unknown]

NARRATIVE: CASE EVENT DATE: 2020
